FAERS Safety Report 13830841 (Version 1)
Quarter: 2017Q3

REPORT INFORMATION
  Report Type: Spontaneous
  Country: US (occurrence: US)
  Receive Date: 20170803
  Receipt Date: 20170803
  Transmission Date: 20171127
  Serious: No
  Sender: FDA-Public Use
  Company Number: US-BAYER-2017-146856

PATIENT
  Sex: Male

DRUGS (1)
  1. GADAVIST [Suspect]
     Active Substance: GADOBUTROL
     Indication: PRODUCT USED FOR UNKNOWN INDICATION
     Dosage: 9 ML, UNK

REACTIONS (2)
  - Hyperhidrosis [None]
  - Vomiting [None]

NARRATIVE: CASE EVENT DATE: 20170728
